FAERS Safety Report 8295299-8 (Version None)
Quarter: 2012Q2

REPORT INFORMATION
  Report Type: 
  Country: None (occurrence: None)
  Receive Date: 20120418
  Receipt Date: 20120404
  Transmission Date: 20120825
  Serious: Yes (Hospitalization)
  Sender: FDA-Public Use
  Company Number: NL-BAXTER-2012BAX002723

PATIENT
  Sex: Female

DRUGS (2)
  1. NAVELBINE [Suspect]
     Route: 042
     Dates: start: 20120401
  2. NAVELBINE [Suspect]
     Route: 042
     Dates: start: 20120405

REACTIONS (1)
  - BACK PAIN [None]
